FAERS Safety Report 18227811 (Version 3)
Quarter: 2022Q3

REPORT INFORMATION
  Report Type: Report from Study
  Country: CA (occurrence: CA)
  Receive Date: 20200903
  Receipt Date: 20220801
  Transmission Date: 20221027
  Serious: Yes (Death, Hospitalization, Other)
  Sender: FDA-Public Use
  Company Number: None

PATIENT
  Age: 71 Year
  Sex: Male

DRUGS (7)
  1. RAMIPRIL [Suspect]
     Active Substance: RAMIPRIL
     Indication: Product used for unknown indication
     Route: 048
  2. PANTOPRAZOLE [Suspect]
     Active Substance: PANTOPRAZOLE
     Indication: Product used for unknown indication
     Route: 048
  3. SANDOSTATIN LAR DEPOT [Suspect]
     Active Substance: OCTREOTIDE ACETATE
     Indication: Carcinoid tumour
     Dosage: 1 EVERY 1 MONTHS
     Route: 030
  4. TIAZAC [Concomitant]
     Active Substance: DILTIAZEM HYDROCHLORIDE
     Indication: Product used for unknown indication
     Dosage: (EXTENDED RELEASE)
     Route: 048
  5. METOPROLOL [Concomitant]
     Active Substance: METOPROLOL
     Indication: Product used for unknown indication
     Dosage: 2 EVERY 1 DAYS
     Route: 048
  6. ALLOPURINOL SODIUM [Concomitant]
     Active Substance: ALLOPURINOL SODIUM
     Indication: Gout
     Route: 048
  7. SANDOSTATIN LAR DEPOT [Suspect]
     Active Substance: OCTREOTIDE ACETATE
     Indication: Carcinoid tumour
     Route: 030

REACTIONS (12)
  - Abdominal discomfort [Fatal]
  - Blood pressure systolic increased [Fatal]
  - Body temperature decreased [Fatal]
  - Constipation [Fatal]
  - Inappropriate schedule of product administration [Fatal]
  - Injection site haemorrhage [Fatal]
  - Injection site mass [Fatal]
  - Injection site swelling [Fatal]
  - Malaise [Fatal]
  - Pain [Fatal]
  - Diarrhoea [Fatal]
  - Injection site reaction [Fatal]
